FAERS Safety Report 4732711-2 (Version None)
Quarter: 2005Q3

REPORT INFORMATION
  Report Type: 
  Country: None (occurrence: None)
  Receive Date: 20050801
  Receipt Date: 20050726
  Transmission Date: 20060218
  Serious: Yes (Hospitalization)
  Sender: FDA-Public Use
  Company Number: USA-2005-0020720

PATIENT
  Age: 14 Year
  Sex: Male

DRUGS (3)
  1. CEFDITOREN PIVOXIL (SIMILAR TO NDA 21-222)(CEFDITOREN PIVOXIL) OTHER [Suspect]
     Indication: MYCOPLASMA INFECTION
     Dosage: 300 MG, DAILY, ORAL
     Route: 048
     Dates: start: 20050704, end: 20050706
  2. IBUPROFEN [Suspect]
     Indication: TONSILLITIS
     Dosage: 200 MG, PRN, ORAL
     Route: 048
     Dates: start: 20050704, end: 20050706
  3. IBUPROFEN [Suspect]
     Indication: TONSILLITIS
     Dosage: 200 MG, PRN, ORAL
     Route: 048
     Dates: start: 20050704, end: 20050708

REACTIONS (2)
  - ERYTHEMA MULTIFORME [None]
  - RASH GENERALISED [None]
